FAERS Safety Report 15855677 (Version 1)
Quarter: 2019Q1

REPORT INFORMATION
  Report Type: Spontaneous
  Country: TW (occurrence: TW)
  Receive Date: 20190122
  Receipt Date: 20190122
  Transmission Date: 20190417
  Serious: Yes (Life-Threatening, Other)
  Sender: FDA-Public Use
  Company Number: PHHY2019TW013082

PATIENT
  Sex: Female

DRUGS (1)
  1. RYDAPT [Suspect]
     Active Substance: MIDOSTAURIN
     Indication: PRODUCT USED FOR UNKNOWN INDICATION
     Route: 065

REACTIONS (5)
  - Oral herpes [Unknown]
  - Febrile neutropenia [Unknown]
  - Cytopenia [Unknown]
  - Herpes simplex [Unknown]
  - Enterobacter sepsis [Unknown]
